FAERS Safety Report 8841919 (Version 1)
Quarter: 2012Q4

REPORT INFORMATION
  Report Type: 
  Country: US (occurrence: US)
  Receive Date: 20121016
  Receipt Date: 20121016
  Transmission Date: 20130627
  Serious: Yes (Hospitalization)
  Sender: FDA-Public Use
  Company Number: US-BAYER-2012-105990

PATIENT
  Age: 20 Year
  Sex: Female

DRUGS (9)
  1. YAZ [Suspect]
  2. YASMIN [Suspect]
  3. OCELLA [Suspect]
  4. IBUPROFEN [Concomitant]
     Dosage: 600 mg, UNK
  5. IRON [Concomitant]
  6. PROMETHAZINE W/CODEINE [Concomitant]
  7. CALCIUM [Concomitant]
  8. 5-HYDROXYTRYPTOPHAN [Concomitant]
  9. AFRIN [Concomitant]

REACTIONS (1)
  - Pulmonary embolism [None]
